FAERS Safety Report 6492995-X (Version None)
Quarter: 2009Q4

REPORT INFORMATION
  Report Type: 
  Country: None (occurrence: None)
  Receive Date: 20091209
  Receipt Date: 20091201
  Transmission Date: 20100525
  Serious: Yes (Other)
  Sender: FDA-Public Use
  Company Number: 0912-SPO-SPLN-0172

PATIENT
  Age: 9 Year
  Sex: Female

DRUGS (2)
  1. SUPPRELIN LA [Suspect]
     Indication: PRECOCIOUS PUBERTY
     Dosage: 1 IN 1 Y, SUB Q. IMPLANT
     Dates: start: 20071201, end: 20081201
  2. SUPPRELIN LA [Suspect]
     Indication: PRECOCIOUS PUBERTY
     Dosage: 1 IN 1 Y, SUB Q. IMPLANT
     Dates: start: 20081201

REACTIONS (2)
  - HAEMATURIA [None]
  - HYPERTENSION [None]
